FAERS Safety Report 7170083-7 (Version None)
Quarter: 2010Q4

REPORT INFORMATION
  Report Type: 
  Country: None (occurrence: None)
  Receive Date: 20101214
  Receipt Date: 20101214
  Transmission Date: 20110411
  Serious: Yes (Disabling, Other)
  Sender: FDA-Public Use
  Company Number: None

PATIENT
  Age: 69 Year
  Sex: Female
  Weight: 45.3597 kg

DRUGS (1)
  1. TAMOXIFEN CITRATE [Suspect]
     Dosage: ONE TABLET DAILY
     Dates: start: 20100803, end: 20101004

REACTIONS (1)
  - RHEUMATOID ARTHRITIS [None]
